FAERS Safety Report 4974408-X (Version None)
Quarter: 2006Q2

REPORT INFORMATION
  Report Type: 
  Country: None (occurrence: None)
  Receive Date: 20060417
  Receipt Date: 20040901
  Transmission Date: 20061013
  Serious: Yes (Other)
  Sender: FDA-Public Use
  Company Number: DE-BRISTOL-MYERS SQUIBB COMPANY-13329594

PATIENT
  Age: 34 Year
  Sex: Female
  Weight: 50 kg

DRUGS (12)
  1. SUSTIVA [Suspect]
     Indication: HIV INFECTION
     Dosage: 400-600 MG/DAY; IN 2002 400 MG/DAY, LATER ON 400 MG/200 MG EVERY OTHER DAY.
     Dates: start: 20000101, end: 20030101
  2. REYATAZ [Suspect]
     Indication: HIV INFECTION
     Dates: start: 20040101
  3. ZERIT [Suspect]
     Indication: HIV INFECTION
     Dates: start: 19970101, end: 20010101
  4. VIDEX [Suspect]
     Indication: HIV INFECTION
     Dosage: DOSAGE CHANGED TO 1 X 250MG PER DAY IN 2000
     Dates: start: 19970101, end: 20010101
  5. INDINAVIR [Suspect]
     Indication: HIV INFECTION
     Dates: start: 19970101, end: 20000101
  6. LAMIVUDINE [Suspect]
     Indication: HIV INFECTION
     Dates: start: 20010101, end: 20020101
  7. ZIDOVUDINE [Suspect]
     Indication: HIV INFECTION
     Dates: start: 20010101, end: 20020101
  8. LOPINAVIR + RITONAVIR [Suspect]
     Dosage: 3-0-3, LATER ON 3-0-2
     Dates: start: 20020101, end: 20030101
  9. LOPINAVIR [Suspect]
     Dates: start: 20040101
  10. RITONAVIR [Suspect]
     Dates: start: 20040101
  11. MAGNESIUM [Concomitant]
     Dates: start: 19970801
  12. VITAMINS [Concomitant]
     Dates: start: 20030101, end: 20040101

REACTIONS (11)
  - ALOPECIA [None]
  - ASCITES [None]
  - CACHEXIA [None]
  - DRY SKIN [None]
  - EYE DISORDER [None]
  - HEPATIC NEOPLASM [None]
  - HIRSUTISM [None]
  - LIPODYSTROPHY ACQUIRED [None]
  - MENSTRUAL DISORDER [None]
  - NAUSEA [None]
  - PRURITUS [None]
